FAERS Safety Report 7049555-1 (Version None)
Quarter: 2010Q4

REPORT INFORMATION
  Report Type: 
  Country: None (occurrence: None)
  Receive Date: 20101013
  Receipt Date: 20101006
  Transmission Date: 20110411
  Serious: Yes (Other)
  Sender: FDA-Public Use
  Company Number: AVE_01951_2010

PATIENT
  Sex: Female

DRUGS (5)
  1. CLONIDINE [Suspect]
     Indication: HYPERTENSION
     Dosage: (0.1 MG QD, VIA 1/WEEKLY PATCH TRANSDERMAL)
     Route: 062
     Dates: start: 20100801
  2. PREDNISOLONE [Concomitant]
  3. SIMVASTATIN [Concomitant]
  4. LEVOTHYROXINE [Concomitant]
  5. HYDROCHLOROTHIAZIDE W/LOSARTAN [Concomitant]

REACTIONS (9)
  - APPLICATION SITE ERYTHEMA [None]
  - APPLICATION SITE PAIN [None]
  - APPLICATION SITE PRURITUS [None]
  - APPLICATION SITE RASH [None]
  - DERMATITIS CONTACT [None]
  - GLUCOSE TOLERANCE IMPAIRED [None]
  - PRODUCT ADHESION ISSUE [None]
  - PRODUCT QUALITY ISSUE [None]
  - WRONG TECHNIQUE IN DRUG USAGE PROCESS [None]
